FAERS Safety Report 6505642-5 (Version None)
Quarter: 2009Q4

REPORT INFORMATION
  Report Type: 
  Country: None (occurrence: None)
  Receive Date: 20091218
  Receipt Date: 20091209
  Transmission Date: 20100525
  Serious: Yes (Other)
  Sender: FDA-Public Use
  Company Number: GXKR2009IT13294

PATIENT
  Age: 11 Year
  Sex: Female

DRUGS (1)
  1. VALPROIC ACID (NGX) [Suspect]
     Indication: GRAND MAL CONVULSION
     Dosage: 24 MG/KG/DAY IN 2 DOSES
     Route: 065

REACTIONS (4)
  - HEPATIC STEATOSIS [None]
  - HYPERINSULINAEMIA [None]
  - INSULIN RESISTANCE [None]
  - OBESITY [None]
